FAERS Safety Report 14933208 (Version 2)
Quarter: 2018Q2

REPORT INFORMATION
  Report Type: Spontaneous
  Country: TH (occurrence: TH)
  Receive Date: 20180524
  Receipt Date: 20180531
  Transmission Date: 20180711
  Serious: Yes (Hospitalization, Other)
  Sender: FDA-Public Use
  Company Number: PHHY2018TH009087

PATIENT
  Age: 57 Year
  Sex: Male

DRUGS (1)
  1. ENTRESTO [Suspect]
     Active Substance: SACUBITRIL\VALSARTAN
     Indication: CARDIAC FAILURE
     Dosage: 0.25 DF, BID
     Route: 065

REACTIONS (20)
  - Upper airway obstruction [Unknown]
  - Anaphylactic reaction [Unknown]
  - Dyspnoea [Unknown]
  - Rash [Unknown]
  - Wrong technique in product usage process [Unknown]
  - Fatigue [Unknown]
  - Respiratory distress [Unknown]
  - Respiratory failure [Unknown]
  - Urticaria [Unknown]
  - Cough [Unknown]
  - Sneezing [Unknown]
  - Loss of consciousness [Unknown]
  - Wheezing [Unknown]
  - Choking [Unknown]
  - Underdose [Unknown]
  - Hypotension [Unknown]
  - Pruritus [Unknown]
  - Chest discomfort [Unknown]
  - Dermatitis allergic [Unknown]
  - Asthma [Unknown]
